FAERS Safety Report 17099463 (Version 1)
Quarter: 2019Q4

REPORT INFORMATION
  Report Type: Spontaneous
  Country: US (occurrence: US)
  Receive Date: 20191201
  Receipt Date: 20191201
  Transmission Date: 20200122
  Serious: Yes (Disabling)
  Sender: FDA-Public Use
  Company Number: None

PATIENT
  Age: 84 Year
  Sex: Female

DRUGS (5)
  1. ELIQUIS [Suspect]
     Active Substance: APIXABAN
     Indication: ANTICOAGULANT THERAPY
     Dosage: ?          QUANTITY:1 TABLET(S);?
     Route: 048
     Dates: start: 20190210
  2. TIMOLOL MALEATE. [Concomitant]
     Active Substance: TIMOLOL MALEATE
  3. VITAMIN D [Concomitant]
     Active Substance: VITAMIN D NOS
  4. LATANOPROST. [Concomitant]
     Active Substance: LATANOPROST
  5. ELIQUIS [Suspect]
     Active Substance: APIXABAN
     Indication: ATRIAL FIBRILLATION
     Dosage: ?          QUANTITY:1 TABLET(S);?
     Route: 048
     Dates: start: 20190210

REACTIONS (15)
  - Anal incontinence [None]
  - Skin laceration [None]
  - Haematochezia [None]
  - Breast haemorrhage [None]
  - Syncope [None]
  - Fall [None]
  - Hypoaesthesia [None]
  - Skin discolouration [None]
  - Arthritis [None]
  - Cognitive disorder [None]
  - Cellulitis [None]
  - Epistaxis [None]
  - Urinary incontinence [None]
  - Contusion [None]
  - Peripheral swelling [None]

NARRATIVE: CASE EVENT DATE: 20190512
